FAERS Safety Report 17762844 (Version 1)
Quarter: 2020Q2

REPORT INFORMATION
  Report Type: Spontaneous
  Country: FR (occurrence: FR)
  Receive Date: 20200509
  Receipt Date: 20200509
  Transmission Date: 20200714
  Serious: Yes (Death)
  Sender: FDA-Public Use
  Company Number: FR-ABBVIE-20K-056-3397214-00

PATIENT
  Age: 44 Year
  Sex: Male
  Weight: 124 kg

DRUGS (2)
  1. PROPOFOL LIPRO [Suspect]
     Active Substance: PROPOFOL
     Indication: SEDATION
     Route: 042
     Dates: start: 20200327, end: 20200331
  2. KALETRA [Suspect]
     Active Substance: LOPINAVIR\RITONAVIR
     Indication: CORONAVIRUS INFECTION
     Route: 048
     Dates: start: 20200327, end: 20200330

REACTIONS (2)
  - Pancreatitis acute [Fatal]
  - Hypertriglyceridaemia [Fatal]

NARRATIVE: CASE EVENT DATE: 20200331
